FAERS Safety Report 6892199-2 (Version None)
Quarter: 2010Q3

REPORT INFORMATION
  Report Type: 
  Country: None (occurrence: None)
  Receive Date: 20100731
  Receipt Date: 20080314
  Transmission Date: 20110219
  Serious: Yes (Other)
  Sender: FDA-Public Use
  Company Number: US-PFIZER INC-2008021910

PATIENT
  Sex: Female
  Weight: 77.272 kg

DRUGS (5)
  1. NORVASC [Suspect]
     Indication: HYPERTENSION
     Dates: start: 20030101
  2. NORVASC [Suspect]
     Indication: ATRIAL FIBRILLATION
  3. COZAAR [Concomitant]
     Indication: BLOOD CHOLESTEROL INCREASED
  4. METFORMIN HCL [Concomitant]
     Indication: HYPERGLYCAEMIA
  5. XALATAN [Concomitant]
     Indication: INTRAOCULAR PRESSURE INCREASED
     Route: 047

REACTIONS (4)
  - DRUG INEFFECTIVE [None]
  - DYSPNOEA [None]
  - FATIGUE [None]
  - HYPERTENSION [None]
